FAERS Safety Report 6426383-9 (Version None)
Quarter: 2009Q4

REPORT INFORMATION
  Report Type: 
  Country: None (occurrence: None)
  Receive Date: 20091030
  Receipt Date: 20091021
  Transmission Date: 20100525
  Serious: Yes (Hospitalization)
  Sender: FDA-Public Use
  Company Number: 2009-03441

PATIENT
  Age: 63 Year
  Sex: Male
  Weight: 65 kg

DRUGS (5)
  1. VELCADE [Suspect]
     Indication: MULTIPLE MYELOMA
     Dosage: 1.3 MG/M2, INTRAVENOUS
     Route: 042
     Dates: start: 20090608, end: 20090803
  2. DECADRON [Concomitant]
  3. NORVASC [Concomitant]
  4. CANDESARTAN CILEXETIL [Concomitant]
  5. RABEPRAZOLE SODIUM [Concomitant]

REACTIONS (6)
  - FALL [None]
  - NEUROPATHY PERIPHERAL [None]
  - ORTHOSTATIC HYPOTENSION [None]
  - PULSE ABSENT [None]
  - SKIN LACERATION [None]
  - SYNCOPE [None]
